FAERS Safety Report 8777318 (Version 1)
Quarter: 2012Q4

REPORT INFORMATION
  Report Type: 
  Country: ID (occurrence: ID)
  Receive Date: 20120911
  Receipt Date: 20120911
  Transmission Date: 20130627
  Serious: Yes (Death, Life-Threatening, Hospitalization, Other)
  Sender: FDA-Public Use
  Company Number: ID-BAYER-2012-090378

PATIENT
  Age: 58 Year
  Sex: Male

DRUGS (1)
  1. NEXAVAR [Suspect]
     Indication: METASTATIC RENAL CELL CARCINOMA
     Dosage: 200 mg, BID
     Route: 048
     Dates: start: 201110, end: 201205

REACTIONS (4)
  - Enteritis [Fatal]
  - Diarrhoea [Fatal]
  - Convulsion [Unknown]
  - Renal failure [Not Recovered/Not Resolved]
